FAERS Safety Report 4774036-5 (Version None)
Quarter: 2005Q3

REPORT INFORMATION
  Report Type: 
  Country: None (occurrence: None)
  Receive Date: 20050920
  Receipt Date: 20050309
  Transmission Date: 20060218
  Serious: Yes (Life-Threatening, Hospitalization)
  Sender: FDA-Public Use
  Company Number: 2005UW03798

PATIENT
  Age: 753 Month
  Sex: Female

DRUGS (2)
  1. CRESTOR [Suspect]
     Indication: BLOOD CHOLESTEROL
     Route: 048
  2. TALIDOMIDA [Suspect]
     Indication: MULTIPLE MYELOMA

REACTIONS (6)
  - ANAEMIA [None]
  - HYPOCALCAEMIA [None]
  - HYPOKALAEMIA [None]
  - POLYTRAUMATISM [None]
  - RENAL FAILURE ACUTE [None]
  - RHABDOMYOLYSIS [None]
